FAERS Safety Report 4690931-X (Version None)
Quarter: 2005Q2

REPORT INFORMATION
  Report Type: 
  Country: None (occurrence: None)
  Receive Date: 20050613
  Receipt Date: 20050607
  Transmission Date: 20051028
  Serious: Yes (Other)
  Sender: FDA-Public Use
  Company Number: 200510502BWH

PATIENT
  Age: 35 Year
  Sex: Female

DRUGS (2)
  1. AVELOX [Suspect]
     Indication: SINUSITIS
     Dosage: 400 MG, QD, ORAL
     Route: 048
     Dates: start: 20050118, end: 20050120
  2. MULTI-VITAMINS [Concomitant]

REACTIONS (1)
  - DRUG HYPERSENSITIVITY [None]
